FAERS Safety Report 24450551 (Version 2)
Quarter: 2025Q2

REPORT INFORMATION
  Report Type: Spontaneous
  Country: RS (occurrence: RS)
  Receive Date: 20241017
  Receipt Date: 20250422
  Transmission Date: 20250716
  Serious: Yes (Hospitalization)
  Sender: BAYER HEALTHCARE PHARMACEUTICALS INC.
  Company Number: RS-BAYER-2024A148068

PATIENT
  Sex: Female

DRUGS (3)
  1. RIOCIGUAT [Suspect]
     Active Substance: RIOCIGUAT
  2. MACITENTAN [Concomitant]
     Active Substance: MACITENTAN
  3. SELEXIPAG [Concomitant]
     Active Substance: SELEXIPAG

REACTIONS (2)
  - Pulmonary arterial hypertension [None]
  - Right ventricular failure [None]

NARRATIVE: CASE EVENT DATE: 20230601
